FAERS Safety Report 22281203 (Version 3)
Quarter: 2024Q1

REPORT INFORMATION
  Report Type: Report from Study
  Country: US (occurrence: US)
  Receive Date: 20230504
  Receipt Date: 20240307
  Transmission Date: 20240409
  Serious: Yes (Other)
  Sender: FDA-Public Use
  Company Number: US-ABBVIE-4751510

PATIENT
  Sex: Female

DRUGS (2)
  1. SKYRIZI [Suspect]
     Active Substance: RISANKIZUMAB-RZAA
     Indication: Psoriasis
     Route: 058
     Dates: start: 20200413
  2. SKYRIZI [Suspect]
     Active Substance: RISANKIZUMAB-RZAA
     Route: 058

REACTIONS (6)
  - Rotator cuff syndrome [Unknown]
  - Rotator cuff syndrome [Recovering/Resolving]
  - Fall [Unknown]
  - Nodule [Unknown]
  - Amnesia [Unknown]
  - Fall [Unknown]

NARRATIVE: CASE EVENT DATE: 20230101
